FAERS Safety Report 16759507 (Version 2)
Quarter: 2019Q3

REPORT INFORMATION
  Report Type: Report from Study
  Country: US (occurrence: US)
  Receive Date: 20190830
  Receipt Date: 20190926
  Transmission Date: 20191005
  Serious: Yes (Hospitalization)
  Sender: FDA-Public Use
  Company Number: US-TAIHO ONCOLOGY  INC-EU-2019-02852

PATIENT
  Sex: Male

DRUGS (6)
  1. HYDROCO/APAP [Concomitant]
     Active Substance: ACETAMINOPHEN\HYDROCODONE
     Dosage: NI
  2. ATIVAN [Concomitant]
     Active Substance: LORAZEPAM
     Dosage: NI
  3. TRAMADOL HCL [Concomitant]
     Active Substance: TRAMADOL HYDROCHLORIDE
     Dosage: NI
  4. LONSURF [Suspect]
     Active Substance: TIPIRACIL HYDROCHLORIDE\TRIFLURIDINE
     Indication: RECTAL CANCER
     Dosage: ON DAYS 1-5 AND 8-12 IN A 28 DAY CYCLE.  CURRENT CYCLE UNKNOWN. FOR TWO DAYS DURING THE LAST CYCLE,
     Route: 048
     Dates: start: 20181130
  5. LONSURF [Suspect]
     Active Substance: TIPIRACIL HYDROCHLORIDE\TRIFLURIDINE
     Dosage: FOR TWO DAYS DURING THE LAST CYCLE, LONSURF WAS TAKEN ONCE A DAY?FORM STRENGTH: 15 MG AND 20 MG.
     Route: 048
     Dates: start: 2019, end: 2019
  6. GABAPENTIN. [Concomitant]
     Active Substance: GABAPENTIN
     Dosage: NI

REACTIONS (5)
  - Nausea [Not Recovered/Not Resolved]
  - Fatigue [Not Recovered/Not Resolved]
  - Vomiting [Not Recovered/Not Resolved]
  - Small intestinal obstruction [Not Recovered/Not Resolved]
  - Inappropriate schedule of product administration [Unknown]

NARRATIVE: CASE EVENT DATE: 2019
